FAERS Safety Report 16023625 (Version 1)
Quarter: 2019Q1

REPORT INFORMATION
  Report Type: Spontaneous
  Country: CO (occurrence: CO)
  Receive Date: 20190301
  Receipt Date: 20190301
  Transmission Date: 20190418
  Serious: Yes (Hospitalization)
  Sender: FDA-Public Use
  Company Number: CO-JNJFOC-20190233528

PATIENT
  Age: 37 Year
  Sex: Male

DRUGS (1)
  1. HALOPERIDOL. [Suspect]
     Active Substance: HALOPERIDOL
     Indication: AKATHISIA
     Route: 065

REACTIONS (2)
  - Osmotic demyelination syndrome [Unknown]
  - Neuroleptic malignant syndrome [Unknown]
